FAERS Safety Report 19469088 (Version 2)
Quarter: 2021Q3

REPORT INFORMATION
  Report Type: Spontaneous
  Country: NL (occurrence: NL)
  Receive Date: 20210628
  Receipt Date: 20210709
  Transmission Date: 20211014
  Serious: Yes (Other)
  Sender: FDA-Public Use
  Company Number: NL-BRISTOL-MYERS SQUIBB COMPANY-BMS-2021-059401

PATIENT
  Sex: Female
  Weight: 65 kg

DRUGS (1)
  1. KENACORT?A40 [Suspect]
     Active Substance: TRIAMCINOLONE ACETONIDE
     Indication: BURSITIS
     Dosage: 40 MG/ML (MILLIGRAM PER MILLILITER),
     Route: 065
     Dates: start: 2021

REACTIONS (9)
  - Malaise [Unknown]
  - Fatigue [Unknown]
  - Memory impairment [Unknown]
  - Muscle discomfort [Unknown]
  - Injection site atrophy [Unknown]
  - Hypertension [Unknown]
  - Hypothyroidism [Unknown]
  - Skin atrophy [Unknown]
  - Injection site reaction [Unknown]
